FAERS Safety Report 16374578 (Version 2)
Quarter: 2019Q2

REPORT INFORMATION
  Report Type: Other
  Country: DE (occurrence: DE)
  Receive Date: 20190530
  Receipt Date: 20190619
  Transmission Date: 20190711
  Serious: Yes (Hospitalization)
  Sender: FDA-Public Use
  Company Number: DE-TOPROL ACQUISITION LLC-2019-TOP-000067

PATIENT
  Sex: Female

DRUGS (8)
  1. METOPROLOL SUCCINATE. [Suspect]
     Active Substance: METOPROLOL SUCCINATE
     Indication: HYPERTENSION
     Dosage: UNK, DAILY
     Route: 048
  2. CANDESARTAN CILEXETIL. [Suspect]
     Active Substance: CANDESARTAN CILEXETIL
     Indication: HYPERTENSION
     Dosage: UNK, DAILY
     Route: 048
  3. IBEROGAST [Concomitant]
     Active Substance: HERBALS
     Indication: PRODUCT USED FOR UNKNOWN INDICATION
     Dosage: UNK
  4. PSYLLIUM                           /01328801/ [Concomitant]
     Active Substance: PLANTAGO SEED
     Indication: PRODUCT USED FOR UNKNOWN INDICATION
     Dosage: UNK
  5. OMNIFLORA [Concomitant]
     Indication: PRODUCT USED FOR UNKNOWN INDICATION
     Dosage: UNK
  6. LACTASE [Concomitant]
     Active Substance: LACTASE
     Indication: PRODUCT USED FOR UNKNOWN INDICATION
     Dosage: UNK
  7. HYGROTON [Concomitant]
     Active Substance: CHLORTHALIDONE
     Indication: PRODUCT USED FOR UNKNOWN INDICATION
     Dosage: UNK
     Route: 065
  8. MIRTAZAPINE. [Suspect]
     Active Substance: MIRTAZAPINE
     Indication: HYPERTENSION
     Dosage: UNK, DAILY
     Route: 065

REACTIONS (7)
  - Abdominal pain [Unknown]
  - Dizziness [Unknown]
  - Anxiety [Unknown]
  - Flatulence [Unknown]
  - Pulmonary embolism [Unknown]
  - Cardiovascular disorder [Unknown]
  - Diarrhoea [Unknown]
